FAERS Safety Report 14314727 (Version 1)
Quarter: 2017Q4

REPORT INFORMATION
  Report Type: Report from Study
  Country: US (occurrence: US)
  Receive Date: 20171221
  Receipt Date: 20171221
  Transmission Date: 20180321
  Serious: Yes (Hospitalization, Other)
  Sender: FDA-Public Use
  Company Number: US-PFIZER INC-2888914

PATIENT
  Age: 71 Year

DRUGS (6)
  1. RITUXAN [Suspect]
     Active Substance: RITUXIMAB
     Indication: DIFFUSE LARGE B-CELL LYMPHOMA
     Dosage: 825 MG, FREQ: 1 WEEK; INTERVAL: 4, Q4 WKS
     Route: 042
     Dates: start: 20141008, end: 20150211
  2. VINCRISTINE SULFATE. [Suspect]
     Active Substance: VINCRISTINE SULFATE
     Indication: DIFFUSE LARGE B-CELL LYMPHOMA
     Dosage: 3.6 MG- 2.4MG, FREQ: 1 WEEK; INTERVAL: 4, Q4WKS
     Route: 042
     Dates: start: 20141008, end: 20150211
  3. CYTOXAN [Suspect]
     Active Substance: CYCLOPHOSPHAMIDE
     Indication: DIFFUSE LARGE B-CELL LYMPHOMA
     Dosage: 1650MG-1240MG -930MG, FREQ: 1 WEEK; INTERVAL: 4. Q4WKS
     Route: 042
     Dates: start: 20141008, end: 20150211
  4. ADRIAMYCIN [Suspect]
     Active Substance: DOXORUBICIN HYDROCHLORIDE
     Indication: DIFFUSE LARGE B-CELL LYMPHOMA
     Dosage: 88 MG- 68MG -52 MG, FREQ: 1 WEEK; INTERVAL: 4, Q4WKS
     Route: 042
     Dates: start: 20141008, end: 20150211
  5. PREDNISON [Suspect]
     Active Substance: PREDNISONE
     Indication: DIFFUSE LARGE B-CELL LYMPHOMA
     Dosage: 130 MG, FREQ: 2 DAY; INTERVAL: 1, FREQUENCY: BID
     Route: 048
     Dates: start: 20141008, end: 20150211
  6. ETOPOSIDE. [Suspect]
     Active Substance: ETOPOSIDE
     Indication: DIFFUSE LARGE B-CELL LYMPHOMA
     Dosage: 440MG -340MG -256MG, FREQ: 1 WEEK; INTERVAL: 4, Q4 WKS
     Route: 042
     Dates: start: 20141008, end: 20150211

REACTIONS (2)
  - Diverticulitis [Unknown]
  - Pancytopenia [Unknown]

NARRATIVE: CASE EVENT DATE: 20141019
